FAERS Safety Report 21593017 (Version 2)
Quarter: 2022Q4

REPORT INFORMATION
  Report Type: Spontaneous
  Country: DE (occurrence: DE)
  Receive Date: 20221114
  Receipt Date: 20221122
  Transmission Date: 20230113
  Serious: Yes (Other)
  Sender: FDA-Public Use
  Company Number: DE-LUNDBECK-DKLU3054630

PATIENT
  Age: 35 Year
  Sex: Female
  Weight: 60 kg

DRUGS (2)
  1. VYEPTI [Suspect]
     Active Substance: EPTINEZUMAB-JJMR
     Indication: Migraine prophylaxis
     Route: 041
     Dates: start: 20221012, end: 20221012
  2. SERTRALINE HYDROCHLORIDE [Concomitant]
     Active Substance: SERTRALINE HYDROCHLORIDE
     Indication: Product used for unknown indication
     Route: 065

REACTIONS (8)
  - Syncope [Unknown]
  - Loss of consciousness [Unknown]
  - Peripheral vascular disorder [Unknown]
  - Headache [Unknown]
  - Fall [Unknown]
  - Muscular weakness [Unknown]
  - Vertigo [Unknown]
  - Skin laceration [Unknown]

NARRATIVE: CASE EVENT DATE: 20221013
